FAERS Safety Report 6603253-4 (Version None)
Quarter: 2010Q1

REPORT INFORMATION
  Report Type: 
  Country: None (occurrence: None)
  Receive Date: 20100218
  Receipt Date: 20100208
  Transmission Date: 20100710
  Serious: Yes (Hospitalization, Other)
  Sender: FDA-Public Use
  Company Number: 230005M10DEU

PATIENT
  Age: 53 Year
  Sex: Female
  Weight: 52 kg

DRUGS (6)
  1. REBIF [Suspect]
     Indication: MULTIPLE SCLEROSIS
     Dosage: 44 MCG, 3 IN 1 WEEKS, SUBCUTANEOUS
     Route: 058
     Dates: start: 19980101, end: 20090603
  2. CARBAMAZEPINE [Concomitant]
  3. LIORESAL [Concomitant]
  4. NEURONTIN [Concomitant]
  5. SAROTEN (AMITRIPTYLING HYDROCHLORIDE) [Concomitant]
  6. PHENYTOIN [Concomitant]

REACTIONS (16)
  - ANAEMIA [None]
  - BALANCE DISORDER [None]
  - BLOOD PRESSURE INCREASED [None]
  - CELLULITIS [None]
  - DRUG HYPERSENSITIVITY [None]
  - FASCIITIS [None]
  - HYPERTENSION [None]
  - INDURATION [None]
  - NEURITIS [None]
  - PAIN [None]
  - SCLEROEDEMA [None]
  - THROMBOCYTOSIS [None]
  - TREMOR [None]
  - TRIGEMINAL NEURALGIA [None]
  - URETHRAL STENOSIS [None]
  - VERTIGO [None]
